FAERS Safety Report 5955401-7 (Version None)
Quarter: 2008Q4

REPORT INFORMATION
  Report Type: 
  Country: None (occurrence: None)
  Receive Date: 20081113
  Receipt Date: 20081103
  Transmission Date: 20090506
  Serious: Yes (Other)
  Sender: FDA-Public Use
  Company Number: GXKR2008GB10497

PATIENT
  Age: 72 Year
  Sex: Male
  Weight: 100 kg

DRUGS (14)
  1. RAMIPRIL [Suspect]
     Indication: CARDIOVASCULAR EVENT PROPHYLAXIS
     Dosage: 2.5 MG, ORAL; 5 MG, BID, ORAL
     Route: 048
     Dates: end: 20070829
  2. RAMIPRIL [Suspect]
     Indication: HYPERTENSION
     Dosage: 2.5 MG, ORAL; 5 MG, BID, ORAL
     Route: 048
     Dates: end: 20070829
  3. RAMIPRIL [Suspect]
     Indication: CARDIOVASCULAR EVENT PROPHYLAXIS
     Dosage: 2.5 MG, ORAL; 5 MG, BID, ORAL
     Route: 048
     Dates: start: 20080304, end: 20081001
  4. RAMIPRIL [Suspect]
     Indication: HYPERTENSION
     Dosage: 2.5 MG, ORAL; 5 MG, BID, ORAL
     Route: 048
     Dates: start: 20080304, end: 20081001
  5. ACYCLOVIR [Concomitant]
  6. ASPIRIN [Concomitant]
  7. ATENOLOL [Concomitant]
  8. ATORVASTATIN CALCIUM [Concomitant]
  9. CLOPIDOGREL [Concomitant]
  10. GLYCERYL TRINITRATE (GLYCERYL TRINITRATE) [Concomitant]
  11. OMACOR  /01403701/ (OMEGA-3 MARINE TRIGLYCERIDES) [Concomitant]
  12. OMEPRAZOLE [Concomitant]
  13. ACETAMINOPHEN [Concomitant]
  14. RAMIPRIL [Concomitant]

REACTIONS (4)
  - AGITATION [None]
  - DROOLING [None]
  - DYSARTHRIA [None]
  - PARKINSONISM [None]
